FAERS Safety Report 14025476 (Version 2)
Quarter: 2017Q4

REPORT INFORMATION
  Report Type: Spontaneous
  Country: US (occurrence: US)
  Receive Date: 20170929
  Receipt Date: 20171020
  Transmission Date: 20180321
  Serious: Yes (Other)
  Sender: FDA-Public Use
  Company Number: US-GLAXOSMITHKLINE-US2017GSK149768

PATIENT
  Sex: Female
  Weight: 92.52 kg

DRUGS (8)
  1. LAMOTRIGINE. [Suspect]
     Active Substance: LAMOTRIGINE
     Indication: MAJOR DEPRESSION
     Dosage: 50 MG, U
     Route: 048
     Dates: end: 20170925
  2. LAMICTAL [Suspect]
     Active Substance: LAMOTRIGINE
     Indication: MAJOR DEPRESSION
  3. LEXAPRO [Concomitant]
     Active Substance: ESCITALOPRAM OXALATE
  4. PAXIL [Concomitant]
     Active Substance: PAROXETINE HYDROCHLORIDE
  5. LAMICTAL [Suspect]
     Active Substance: LAMOTRIGINE
     Indication: BIPOLAR DISORDER
     Dosage: 50 MG, 1D
     Route: 048
     Dates: end: 20170925
  6. LAMOTRIGINE. [Suspect]
     Active Substance: LAMOTRIGINE
     Indication: PREMENSTRUAL DYSPHORIC DISORDER
  7. LAMOTRIGINE. [Suspect]
     Active Substance: LAMOTRIGINE
     Indication: BIPOLAR DISORDER
     Dosage: 100 MG, U
     Route: 048
     Dates: start: 20161201
  8. ABILIFY [Concomitant]
     Active Substance: ARIPIPRAZOLE

REACTIONS (10)
  - Pain in extremity [Unknown]
  - Drug ineffective [Recovered/Resolved]
  - Hyperlipidaemia [Unknown]
  - Product use in unapproved indication [Unknown]
  - Facial paralysis [Recovered/Resolved]
  - Dizziness [Unknown]
  - Peripheral artery occlusion [Not Recovered/Not Resolved]
  - Facial pain [Unknown]
  - Myocardial infarction [Unknown]
  - Weight decreased [Recovered/Resolved]
